FAERS Safety Report 5263667-4 (Version None)
Quarter: 2007Q1

REPORT INFORMATION
  Report Type: 
  Country: None (occurrence: None)
  Receive Date: 20070312
  Receipt Date: 20070312
  Transmission Date: 20070707
  Serious: No
  Sender: FDA-Public Use
  Company Number: None

PATIENT
  Sex: Male

DRUGS (2)
  1. ALTACE [Suspect]
     Dosage: CAPSULE  BOTTLE 11DRAM
  2. ARICEPT [Suspect]
     Dosage: TABLET  BOTTLE 11DRAM

REACTIONS (1)
  - MEDICATION ERROR [None]
